FAERS Safety Report 16020414 (Version 2)
Quarter: 2019Q1

REPORT INFORMATION
  Report Type: Report from Study
  Country: None (occurrence: US)
  Receive Date: 20190301
  Receipt Date: 20190330
  Transmission Date: 20190418
  Serious: Yes (Hospitalization)
  Sender: FDA-Public Use
  Company Number: US-ABBVIE-19K-163-2679089-00

PATIENT
  Age: 72 Year
  Sex: Female
  Weight: 81.72 kg

DRUGS (1)
  1. HUMIRA [Suspect]
     Active Substance: ADALIMUMAB
     Indication: PSORIASIS
     Dosage: LOADING DOSE
     Route: 058
     Dates: start: 201901, end: 201901

REACTIONS (9)
  - Blood glucose decreased [Unknown]
  - Drug hypersensitivity [Recovered/Resolved]
  - Swollen tongue [Unknown]
  - Cardiac murmur [Unknown]
  - Memory impairment [Unknown]
  - Speech disorder [Recovered/Resolved]
  - Tongue spasm [Unknown]
  - Nervous system disorder [Unknown]
  - Blood pressure increased [Unknown]

NARRATIVE: CASE EVENT DATE: 201901
